FAERS Safety Report 6260234-0 (Version None)
Quarter: 2009Q3

REPORT INFORMATION
  Report Type: 
  Country: None (occurrence: None)
  Receive Date: 20090708
  Receipt Date: 20090629
  Transmission Date: 20100115
  Serious: Yes (Hospitalization, Other)
  Sender: FDA-Public Use
  Company Number: GB-ASTRAZENECA-2009SE03823

PATIENT
  Age: 639 Month
  Sex: Female

DRUGS (1)
  1. ZOLADEX [Suspect]
     Indication: MENORRHAGIA
     Route: 058
     Dates: start: 20090401, end: 20090601

REACTIONS (7)
  - ARTHRALGIA [None]
  - DIZZINESS [None]
  - HEADACHE [None]
  - HOT FLUSH [None]
  - HYPERTENSION [None]
  - URINE OUTPUT INCREASED [None]
  - WEIGHT DECREASED [None]
